FAERS Safety Report 6679667-3 (Version None)
Quarter: 2010Q2

REPORT INFORMATION
  Report Type: 
  Country: None (occurrence: None)
  Receive Date: 20100413
  Receipt Date: 20100407
  Transmission Date: 20101027
  Serious: Yes (Hospitalization)
  Sender: FDA-Public Use
  Company Number: B0645774A

PATIENT
  Age: 56 Year
  Sex: Female

DRUGS (3)
  1. ONDANSETRON [Suspect]
     Dosage: 16MG PER DAY
  2. METOCLOPRAMIDE HYDROCHLORIDE [Suspect]
     Dosage: 30MG PER DAY
  3. CHEMOTHERAPY [Concomitant]

REACTIONS (1)
  - DYSTONIA [None]
